FAERS Safety Report 17953527 (Version 2)
Quarter: 2020Q3

REPORT INFORMATION
  Report Type: Spontaneous
  Country: US (occurrence: US)
  Receive Date: 20200628
  Receipt Date: 20200923
  Transmission Date: 20201103
  Serious: No
  Sender: FDA-Public Use
  Company Number: US-EMD SERONO-9056482

PATIENT
  Age: 64 Year
  Sex: Female

DRUGS (3)
  1. REBIF [Suspect]
     Active Substance: INTERFERON BETA-1A
     Indication: MULTIPLE SCLEROSIS
     Route: 058
     Dates: start: 20120822, end: 201812
  2. REBIF [Suspect]
     Active Substance: INTERFERON BETA-1A
     Dosage: PREFILLED SYRINGE
     Route: 058
     Dates: start: 20190916
  3. PEPPERMINT OIL [Concomitant]
     Active Substance: PEPPERMINT OIL
     Indication: PAIN IN EXTREMITY

REACTIONS (7)
  - Injection site erythema [Not Recovered/Not Resolved]
  - Somnolence [Unknown]
  - Multiple sclerosis relapse [Recovering/Resolving]
  - Product dose omission issue [Unknown]
  - Influenza like illness [Recovering/Resolving]
  - Sleep disorder [Unknown]
  - Needle fatigue [Unknown]

NARRATIVE: CASE EVENT DATE: 202008
